FAERS Safety Report 5095632-4 (Version None)
Quarter: 2006Q3

REPORT INFORMATION
  Report Type: 
  Country: None (occurrence: None)
  Receive Date: 20060904
  Receipt Date: 20060825
  Transmission Date: 20061208
  Serious: Yes (Hospitalization)
  Sender: FDA-Public Use
  Company Number: GB-SP-2006-02314

PATIENT
  Age: 68 Year
  Sex: Male

DRUGS (4)
  1. IMMUCYST [Suspect]
     Indication: BLADDER CANCER
     Route: 043
     Dates: start: 20040801, end: 20060401
  2. AMLODIPINE [Concomitant]
     Indication: BLOOD PRESSURE INCREASED
     Route: 048
  3. ATORVASTATIN CALCIUM [Concomitant]
     Indication: BLOOD CHOLESTEROL INCREASED
     Route: 048
  4. IBERSARTAN [Concomitant]
     Indication: RENAL INJURY
     Route: 048

REACTIONS (4)
  - DYSURIA [None]
  - HAEMORRHAGE URINARY TRACT [None]
  - POLLAKIURIA [None]
  - URINARY TRACT OBSTRUCTION [None]
